FAERS Safety Report 15808291 (Version 1)
Quarter: 2019Q1

REPORT INFORMATION
  Report Type: Spontaneous
  Country: US (occurrence: US)
  Receive Date: 20190110
  Receipt Date: 20190110
  Transmission Date: 20190417
  Serious: Yes (Hospitalization)
  Sender: FDA-Public Use
  Company Number: US-ASTRAZENECA-2019SE01672

PATIENT
  Age: 50 Year
  Sex: Male
  Weight: 158.8 kg

DRUGS (1)
  1. BYETTA [Suspect]
     Active Substance: EXENATIDE
     Indication: TYPE 2 DIABETES MELLITUS
     Route: 058
     Dates: start: 2016

REACTIONS (8)
  - Hypophagia [Unknown]
  - Diverticulitis [Recovered/Resolved]
  - Glycosylated haemoglobin abnormal [Unknown]
  - Influenza [Unknown]
  - Blood glucose abnormal [Unknown]
  - Wrong technique in device usage process [Unknown]
  - Product dose omission [Unknown]
  - Device issue [Unknown]

NARRATIVE: CASE EVENT DATE: 2017
